FAERS Safety Report 8553855-3 (Version None)
Quarter: 2012Q3

REPORT INFORMATION
  Report Type: 
  Country: None (occurrence: None)
  Receive Date: 20120725
  Receipt Date: 20120725
  Transmission Date: 20120928
  Serious: No
  Sender: FDA-Public Use
  Company Number: None

PATIENT
  Age: 30 Year
  Sex: Male
  Weight: 115.6672 kg

DRUGS (1)
  1. FLEXERIL [Suspect]
     Indication: MUSCLE TIGHTNESS
     Dosage: 1, 3 A DAY, PO
     Route: 048
     Dates: start: 20120101, end: 20120722

REACTIONS (5)
  - URTICARIA [None]
  - PHOTOSENSITIVITY REACTION [None]
  - RASH [None]
  - ERYTHEMA [None]
  - SKIN DISCOLOURATION [None]
